FAERS Safety Report 21981846 (Version 2)
Quarter: 2023Q1

REPORT INFORMATION
  Report Type: Spontaneous
  Country: US (occurrence: US)
  Receive Date: 20230212
  Receipt Date: 20230217
  Transmission Date: 20230417
  Serious: No
  Sender: FDA-Public Use
  Company Number: US-ELI_LILLY_AND_COMPANY-US202301013996

PATIENT
  Sex: Male

DRUGS (2)
  1. RETEVMO [Interacting]
     Active Substance: SELPERCATINIB
     Indication: Lung neoplasm malignant
     Dosage: 120 MG, BID
     Route: 065
     Dates: start: 202211
  2. OTEZLA [Interacting]
     Active Substance: APREMILAST
     Indication: Product used for unknown indication
     Dosage: UNK UNK, UNKNOWN
     Route: 065

REACTIONS (2)
  - Drug interaction [Unknown]
  - Cough [Unknown]
